FAERS Safety Report 17050497 (Version 2)
Quarter: 2019Q4

REPORT INFORMATION
  Report Type: Spontaneous
  Country: US (occurrence: US)
  Receive Date: 20191119
  Receipt Date: 20191219
  Transmission Date: 20200122
  Serious: Yes (Hospitalization, Other)
  Sender: FDA-Public Use
  Company Number: US-BIOMARINAP-US-2019-126907

PATIENT
  Age: 6 Year
  Sex: Female
  Weight: 15 kg

DRUGS (1)
  1. VIMIZIM [Suspect]
     Active Substance: ELOSULFASE ALFA
     Indication: MUCOPOLYSACCHARIDOSIS IV
     Dosage: 30 MILLIGRAM, QW
     Route: 042
     Dates: start: 20191028

REACTIONS (5)
  - Atlantoaxial instability [Unknown]
  - Product dose omission [Unknown]
  - Myelomalacia [Unknown]
  - Cervical cord compression [Unknown]
  - Platyspondylia [Unknown]

NARRATIVE: CASE EVENT DATE: 20191111
